FAERS Safety Report 5934223-7 (Version None)
Quarter: 2008Q4

REPORT INFORMATION
  Report Type: 
  Country: None (occurrence: None)
  Receive Date: 20081028
  Receipt Date: 20081028
  Transmission Date: 20090506
  Serious: Yes (Other)
  Sender: FDA-Public Use
  Company Number: None

PATIENT
  Sex: Male
  Weight: 41.5 kg

DRUGS (1)
  1. SINGULAIR [Suspect]
     Indication: SLEEP APNOEA SYNDROME
     Dosage: 5MG ONCE A DAY PO
     Route: 048
     Dates: start: 20071109, end: 20071110

REACTIONS (2)
  - ABNORMAL BEHAVIOUR [None]
  - AGGRESSION [None]
